FAERS Safety Report 13434075 (Version 2)
Quarter: 2017Q2

REPORT INFORMATION
  Report Type: Report from Study
  Country: US (occurrence: US)
  Receive Date: 20170412
  Receipt Date: 20170426
  Transmission Date: 20170830
  Serious: Yes (Hospitalization, Other)
  Sender: FDA-Public Use
  Company Number: US-PFIZER INC-2016598702

PATIENT
  Age: 60 Year
  Sex: Female

DRUGS (1)
  1. SUTENT [Suspect]
     Active Substance: SUNITINIB MALATE
     Indication: RENAL CELL CARCINOMA
     Dosage: 25 MG, DAILY
     Route: 048
     Dates: start: 20161104, end: 20170201

REACTIONS (5)
  - Asthenia [Unknown]
  - Fatigue [Not Recovered/Not Resolved]
  - Neutropenia [Unknown]
  - Abdominal abscess [Unknown]
  - Anaemia [Unknown]
